FAERS Safety Report 8141614-5 (Version None)
Quarter: 2012Q1

REPORT INFORMATION
  Report Type: 
  Country: None (occurrence: None)
  Receive Date: 20120103
  Receipt Date: 20111114
  Transmission Date: 20120608
  Serious: No
  Sender: FDA-Public Use
  Company Number: AE-2011-002598

PATIENT
  Age: 61 Year
  Sex: Male

DRUGS (3)
  1. INCIVEK [Suspect]
  2. PEG-INTRON [Concomitant]
  3. RIBAVIRIN [Concomitant]

REACTIONS (2)
  - PYREXIA [None]
  - RASH MACULO-PAPULAR [None]
